FAERS Safety Report 19745885 (Version 5)
Quarter: 2023Q2

REPORT INFORMATION
  Report Type: Other
  Country: AT (occurrence: None)
  Receive Date: 20210825
  Receipt Date: 20230622
  Transmission Date: 20230722
  Serious: Yes (Hospitalization)
  Sender: FDA-Public Use
  Company Number: AT-ROCHE-2840760

PATIENT
  Age: 65 Year
  Sex: Male
  Weight: 86.8 kg

DRUGS (12)
  1. ATEZOLIZUMAB [Suspect]
     Active Substance: ATEZOLIZUMAB
     Indication: Small cell lung cancer extensive stage
     Dosage: MOST RECENT DOSE OF ATEZOLIZUMAB (1200 MG) ON 20/MAY/2021 PRIOR TO ONSET OF AE AND SAE.
     Route: 041
     Dates: start: 20210113
  2. CARBOPLATIN [Suspect]
     Active Substance: CARBOPLATIN
     Indication: Small cell lung cancer extensive stage
     Route: 065
     Dates: start: 20210113
  3. ETOPOSIDE [Suspect]
     Active Substance: ETOPOSIDE
     Indication: Small cell lung cancer extensive stage
     Route: 042
     Dates: start: 20210113
  4. ASPIRIN [Concomitant]
     Active Substance: ASPIRIN
     Dates: start: 20160823, end: 20210601
  5. EXFORGE [Concomitant]
     Active Substance: AMLODIPINE BESYLATE\VALSARTAN
     Dates: start: 20160829
  6. DIOVAN [Concomitant]
     Active Substance: VALSARTAN
     Dates: start: 20191205
  7. ATORVASTATIN [Concomitant]
     Active Substance: ATORVASTATIN
     Dates: start: 20160823
  8. POLYETHYLENE GLYCOL 3350\POTASSIUM CHLORIDE\SODIUM BICARBONATE\SODIUM [Concomitant]
     Active Substance: POLYETHYLENE GLYCOL 3350\POTASSIUM CHLORIDE\SODIUM BICARBONATE\SODIUM CHLORIDE
     Dates: start: 20210216, end: 20210429
  9. ARANESP [Concomitant]
     Active Substance: DARBEPOETIN ALFA
     Indication: Prophylaxis
     Dates: start: 20210430, end: 20210430
  10. MYCOSTATIN [Concomitant]
     Active Substance: NYSTATIN
     Dates: start: 20210520
  11. PANTOPRAZOLE SODIUM [Concomitant]
     Active Substance: PANTOPRAZOLE SODIUM
     Indication: Prophylaxis
     Dates: start: 20210515, end: 20210515
  12. PFIZER-BIONTECH COVID-19 VACCINE [Concomitant]
     Active Substance: TOZINAMERAN
     Indication: Prophylaxis
     Dosage: SECOND COVID VACCINATION
     Dates: start: 20210515, end: 20210515

REACTIONS (4)
  - Venous thrombosis [Not Recovered/Not Resolved]
  - Pyrexia [Recovered/Resolved]
  - Pneumonia [Recovered/Resolved]
  - Radiation pneumonitis [Not Recovered/Not Resolved]

NARRATIVE: CASE EVENT DATE: 20210527
